FAERS Safety Report 8366976-5 (Version None)
Quarter: 2012Q2

REPORT INFORMATION
  Report Type: 
  Country: None (occurrence: None)
  Receive Date: 20120517
  Receipt Date: 20120516
  Transmission Date: 20120825
  Serious: Yes (Death, Hospitalization)
  Sender: FDA-Public Use
  Company Number: PHHO2011US12277

PATIENT
  Sex: Female
  Weight: 68 kg

DRUGS (4)
  1. PREDNISONE [Concomitant]
     Indication: LIVER TRANSPLANT
     Dosage: UNK
     Route: 048
     Dates: start: 20091024
  2. TACROLIMUS [Suspect]
     Indication: LIVER TRANSPLANT
     Dosage: 2MG AM, 1.5MG PM
     Route: 048
     Dates: start: 20091025, end: 20091222
  3. LACTULOSE [Concomitant]
  4. ZORTRESS [Suspect]
     Indication: LIVER TRANSPLANT
     Dosage: 1 MG, BID
     Route: 048
     Dates: start: 20091125, end: 20091221

REACTIONS (7)
  - RENAL FAILURE [None]
  - LIVER TRANSPLANT REJECTION [None]
  - HEPATIC FAILURE [None]
  - HEPATITIS C [None]
  - TRANSPLANT FAILURE [None]
  - MULTI-ORGAN FAILURE [None]
  - RESPIRATORY FAILURE [None]
